FAERS Safety Report 6876303-8 (Version None)
Quarter: 2010Q3

REPORT INFORMATION
  Report Type: 
  Country: None (occurrence: None)
  Receive Date: 20100727
  Receipt Date: 20100721
  Transmission Date: 20110219
  Serious: Yes (Hospitalization)
  Sender: FDA-Public Use
  Company Number: D0068367A

PATIENT
  Sex: Female

DRUGS (1)
  1. MALARONE [Suspect]
     Indication: MALARIA PROPHYLAXIS
     Route: 065
     Dates: start: 20100601, end: 20100601

REACTIONS (12)
  - AURICULAR SWELLING [None]
  - COUGH [None]
  - DRUG HYPERSENSITIVITY [None]
  - DYSPEPSIA [None]
  - FATIGUE [None]
  - HEADACHE [None]
  - HYPERSENSITIVITY [None]
  - INSOMNIA [None]
  - MENSTRUAL DISORDER [None]
  - PULMONARY VASCULITIS [None]
  - RESPIRATORY DISORDER [None]
  - VASCULITIS [None]
